FAERS Safety Report 24551681 (Version 2)
Quarter: 2025Q3

REPORT INFORMATION
  Report Type: Report from Study
  Country: US (occurrence: US)
  Receive Date: 20241026
  Receipt Date: 20250803
  Transmission Date: 20251020
  Serious: Yes (Hospitalization, Other)
  Sender: ALEXION PHARMACEUTICALS
  Company Number: US-AstraZeneca-CH-00727808A

PATIENT
  Age: 78 Year
  Sex: Male

DRUGS (1)
  1. OSIMERTINIB [Suspect]
     Active Substance: OSIMERTINIB

REACTIONS (4)
  - Neoplasm malignant [Unknown]
  - Cerebrovascular accident [Unknown]
  - Depressed level of consciousness [Unknown]
  - General physical health deterioration [Unknown]

NARRATIVE: CASE EVENT DATE: 20240901
